FAERS Safety Report 22283147 (Version 1)
Quarter: 2023Q2

REPORT INFORMATION
  Report Type: Report from Study
  Country: GB (occurrence: None)
  Receive Date: 20230504
  Receipt Date: 20230504
  Transmission Date: 20230722
  Serious: Yes (Hospitalization)
  Sender: FDA-Public Use
  Company Number: GB-ROCHE-3319644

PATIENT
  Age: 46 Year
  Sex: Female
  Weight: 76.7 kg

DRUGS (4)
  1. GEMCITABINE [Suspect]
     Active Substance: GEMCITABINE
     Indication: Malignant neoplasm of unknown primary site
     Dosage: DOSE OF LAST INDUCTION STUDY DRUG 2 ADMINISTERED PRIOR TO SAE/AESI ONSET //2029?DATE OF LAST DOSE OF
     Route: 042
     Dates: start: 20221201
  2. ATEZOLIZUMAB [Suspect]
     Active Substance: ATEZOLIZUMAB
     Indication: Malignant neoplasm of unknown primary site
     Dosage: ON 28/FEB/2023, SHE RECEIVED LAST DOSE OF TREATMENT STUDY DRUG 1 PRIOR TO SAE/AESI ONSET, DOSE OF LA
     Route: 041
     Dates: start: 20230228
  3. ONDANSETRON [Concomitant]
     Active Substance: ONDANSETRON
     Indication: Vomiting
     Route: 042
     Dates: start: 20221208
  4. METOCLOPRAMIDE [Concomitant]
     Active Substance: METOCLOPRAMIDE
     Indication: Vomiting
     Route: 042
     Dates: start: 20221208

REACTIONS (1)
  - Hip fracture [Not Recovered/Not Resolved]

NARRATIVE: CASE EVENT DATE: 20230323
